FAERS Safety Report 5404716-X (Version None)
Quarter: 2007Q3

REPORT INFORMATION
  Report Type: 
  Country: None (occurrence: None)
  Receive Date: 20070801
  Receipt Date: 20070716
  Transmission Date: 20080115
  Serious: Yes (Death)
  Sender: FDA-Public Use
  Company Number: 2007-01436

PATIENT
  Age: 52 Year
  Sex: Male
  Weight: 65.7 kg

DRUGS (20)
  1. VELCADE [Suspect]
     Indication: MULTIPLE MYELOMA
     Dosage: 2.20 MG, INTRAVENOUS
     Route: 042
     Dates: start: 20070507, end: 20070510
  2. VINCRISTINE [Suspect]
     Indication: MULTIPLE MYELOMA
     Dosage: 2.00 MG; 1.00 MG; 2.00 MG; 1.00 MG
     Dates: start: 20061229
  3. VINCRISTINE [Suspect]
     Indication: MULTIPLE MYELOMA
     Dosage: 2.00 MG; 1.00 MG; 2.00 MG; 1.00 MG
     Dates: start: 20070205
  4. VINCRISTINE [Suspect]
     Indication: MULTIPLE MYELOMA
     Dosage: 2.00 MG; 1.00 MG; 2.00 MG; 1.00 MG
     Dates: start: 20070305
  5. VINCRISTINE [Suspect]
     Indication: MULTIPLE MYELOMA
     Dosage: 2.00 MG; 1.00 MG; 2.00 MG; 1.00 MG
     Dates: start: 20070409
  6. CARMUSTINE [Suspect]
     Indication: MULTIPLE MYELOMA
     Dosage: 30.00 MG; 50.00 MG; 30.00 MG; 50.00 MG
     Dates: start: 20061229
  7. CARMUSTINE [Suspect]
     Indication: MULTIPLE MYELOMA
     Dosage: 30.00 MG; 50.00 MG; 30.00 MG; 50.00 MG
     Dates: start: 20070205
  8. CARMUSTINE [Suspect]
     Indication: MULTIPLE MYELOMA
     Dosage: 30.00 MG; 50.00 MG; 30.00 MG; 50.00 MG
     Dates: start: 20070305
  9. CARMUSTINE [Suspect]
     Indication: MULTIPLE MYELOMA
     Dosage: 30.00 MG; 50.00 MG; 30.00 MG; 50.00 MG
     Dates: start: 20070409
  10. MELPHALAN(MELPHALAN) VIAL [Suspect]
     Indication: MULTIPLE MYELOMA
     Dosage: 16.00 MG
     Dates: start: 20061229, end: 20070101
  11. CYCLOPHOSPHAMIDE [Suspect]
     Indication: MULTIPLE MYELOMA
     Dosage: 650 MG
     Dates: start: 20061229, end: 20070305
  12. PREDNISONE [Suspect]
     Indication: MULTIPLE MYELOMA
     Dosage: 60.00 MG; 30.00 MG; 15.00 MG; 60.00 MG; 30.00 MG; 15.00 MG
     Dates: start: 20061229, end: 20070101
  13. PREDNISONE [Suspect]
     Indication: MULTIPLE MYELOMA
     Dosage: 60.00 MG; 30.00 MG; 15.00 MG; 60.00 MG; 30.00 MG; 15.00 MG
     Dates: start: 20070102, end: 20070105
  14. PREDNISONE [Suspect]
     Indication: MULTIPLE MYELOMA
     Dosage: 60.00 MG; 30.00 MG; 15.00 MG; 60.00 MG; 30.00 MG; 15.00 MG
     Dates: start: 20070106, end: 20070109
  15. PREDNISONE [Suspect]
     Indication: MULTIPLE MYELOMA
     Dosage: 60.00 MG; 30.00 MG; 15.00 MG; 60.00 MG; 30.00 MG; 15.00 MG
     Dates: start: 20070305, end: 20070308
  16. PREDNISONE [Suspect]
     Indication: MULTIPLE MYELOMA
     Dosage: 60.00 MG; 30.00 MG; 15.00 MG; 60.00 MG; 30.00 MG; 15.00 MG
     Dates: start: 20070309, end: 20070312
  17. PREDNISONE [Suspect]
     Indication: MULTIPLE MYELOMA
     Dosage: 60.00 MG; 30.00 MG; 15.00 MG; 60.00 MG; 30.00 MG; 15.00 MG
     Dates: start: 20070313, end: 20070316
  18. DOXORUBICIN HCL [Suspect]
     Indication: MULTIPLE MYELOMA
     Dosage: 68.00 MG
     Dates: start: 20070205, end: 20070409
  19. DEXAMETHASONE [Suspect]
     Indication: MULTIPLE MYELOMA
     Dosage: 40.00 MG
     Dates: start: 20070205, end: 20070224
  20. DEXAMETHASONE [Suspect]
     Indication: MULTIPLE MYELOMA
     Dosage: 40.00 MG
     Dates: start: 20070409, end: 20070428

REACTIONS (1)
  - SUDDEN DEATH [None]
